FAERS Safety Report 8310680-6 (Version None)
Quarter: 2012Q2

REPORT INFORMATION
  Report Type: 
  Country: None (occurrence: None)
  Receive Date: 20120425
  Receipt Date: 20120417
  Transmission Date: 20120825
  Serious: Yes (Death, Hospitalization, Disabling)
  Sender: FDA-Public Use
  Company Number: FR-CELGENEUS-056-21880-12041922

PATIENT
  Sex: Male

DRUGS (8)
  1. REVLIMID [Suspect]
     Indication: MULTIPLE MYELOMA
     Dosage: 25 MILLIGRAM
     Route: 048
     Dates: start: 20071201, end: 20090301
  2. LEVACT [Suspect]
     Dosage: 180 MILLIGRAM
     Route: 041
     Dates: start: 20091123, end: 20100216
  3. THALIDOMIDE [Suspect]
     Indication: MULTIPLE MYELOMA
     Dosage: 50 MILLIGRAM
     Route: 048
     Dates: start: 20061101, end: 20070701
  4. LEVACT [Suspect]
     Dosage: 177.5 MILLIGRAM
     Route: 041
     Dates: start: 20100124, end: 20100125
  5. LEVACT [Suspect]
     Indication: MULTIPLE MYELOMA
     Dosage: 220 MILLIGRAM
     Route: 041
     Dates: start: 20090831, end: 20091013
  6. VELCADE [Suspect]
     Dosage: 2.2 MILLIGRAM
     Route: 041
     Dates: start: 20111117, end: 20111215
  7. VELCADE [Suspect]
     Indication: MULTIPLE MYELOMA
     Dosage: 2.6 MILLIGRAM
     Route: 041
     Dates: start: 20111010, end: 20111114
  8. LEVACT [Suspect]
     Dosage: 237.5 MILLIGRAM
     Route: 041
     Dates: start: 20100221, end: 20110531

REACTIONS (1)
  - PROGRESSIVE MULTIFOCAL LEUKOENCEPHALOPATHY [None]
